FAERS Safety Report 14509151 (Version 3)
Quarter: 2018Q1

REPORT INFORMATION
  Report Type: Report from Study
  Country: FR (occurrence: FR)
  Receive Date: 20180209
  Receipt Date: 20180228
  Transmission Date: 20180509
  Serious: Yes (Death, Hospitalization, Other)
  Sender: FDA-Public Use
  Company Number: FR-BRISTOL-MYERS SQUIBB COMPANY-BMS-2018-003853

PATIENT
  Age: 63 Year
  Sex: Male
  Weight: 43.6 kg

DRUGS (1)
  1. NIVOLUMAB [Suspect]
     Active Substance: NIVOLUMAB
     Indication: SQUAMOUS CELL CARCINOMA OF HEAD AND NECK
     Dosage: 135 MG, UNK
     Route: 042
     Dates: start: 20171214, end: 20180111

REACTIONS (2)
  - General physical health deterioration [Fatal]
  - Anaemia [Unknown]

NARRATIVE: CASE EVENT DATE: 20180111
